FAERS Safety Report 5375880-6 (Version None)
Quarter: 2007Q3

REPORT INFORMATION
  Report Type: 
  Country: None (occurrence: None)
  Receive Date: 20070702
  Receipt Date: 20070627
  Transmission Date: 20080115
  Serious: Yes (Death)
  Sender: FDA-Public Use
  Company Number: PHBS2007US10887

PATIENT
  Age: 58 Year
  Sex: Male

DRUGS (1)
  1. IMATINIB MESYLATE [Suspect]
     Dosage: 400 TO 800 MG/D
     Route: 065

REACTIONS (2)
  - PNEUMONIA [None]
  - SEPTIC SHOCK [None]
